FAERS Safety Report 9435982 (Version 1)
Quarter: 2013Q3

REPORT INFORMATION
  Report Type: Spontaneous
  Country: US (occurrence: US)
  Receive Date: 20130801
  Receipt Date: 20130801
  Transmission Date: 20140515
  Serious: No
  Sender: FDA-Public Use
  Company Number: US-009507513-1307USA015102

PATIENT
  Age: 23 Year
  Sex: 0

DRUGS (1)
  1. SAPHRIS [Suspect]

REACTIONS (2)
  - Psychotic disorder [Unknown]
  - Thinking abnormal [Unknown]
